FAERS Safety Report 12746695 (Version 1)
Quarter: 2016Q3

REPORT INFORMATION
  Report Type: Spontaneous
  Country: US (occurrence: US)
  Receive Date: 20160915
  Receipt Date: 20160915
  Transmission Date: 20161109
  Serious: Yes (Death)
  Sender: FDA-Public Use
  Company Number: None

PATIENT
  Age: 67 Year
  Sex: Female

DRUGS (2)
  1. HUMALOG [Suspect]
     Active Substance: INSULIN LISPRO
     Indication: RENAL TRANSPLANT
     Dosage: OTHER STRENGTH:;OTHER DOSE:;OTHER FREQUENCY:BEFORE MEALS;OTHER ROUTE:
     Route: 058
     Dates: start: 20151105
  2. LANTUS [Suspect]
     Active Substance: INSULIN GLARGINE
     Indication: RENAL TRANSPLANT
     Route: 058
     Dates: start: 20151124

REACTIONS (1)
  - Death [None]

NARRATIVE: CASE EVENT DATE: 20160912
